FAERS Safety Report 25510940 (Version 1)
Quarter: 2025Q3

REPORT INFORMATION
  Report Type: Spontaneous
  Country: EU (occurrence: EU)
  Receive Date: 20250703
  Receipt Date: 20250703
  Transmission Date: 20251020
  Serious: Yes (Other)
  Sender: SANDOZ
  Company Number: EU-CELGENE-FRA-20220107732

PATIENT
  Age: 55 Year
  Sex: Male
  Weight: 95 kg

DRUGS (3)
  1. ABECMA [Suspect]
     Active Substance: IDECABTAGENE VICLEUCEL
     Indication: Plasma cell myeloma
     Route: 042
     Dates: start: 20211013, end: 20211013
  2. CYCLOPHOSPHAMIDE [Suspect]
     Active Substance: CYCLOPHOSPHAMIDE
     Indication: Plasma cell myeloma
     Dosage: 300 MG/M2, QD (300 MG/M2, QD ONCE DAILY, 300 MILLIGRAM/SQ. METER)
     Route: 041
     Dates: start: 20211008, end: 20211010
  3. FLUDARABINE [Suspect]
     Active Substance: FLUDARABINE PHOSPHATE
     Indication: Plasma cell myeloma
     Dosage: 30 MG/M2, QD (30 MILLIGRAM/SQ. METER)
     Route: 041
     Dates: start: 20211008, end: 20211010

REACTIONS (4)
  - Hypogammaglobulinaemia [Not Recovered/Not Resolved]
  - Cytokine release syndrome [Recovered/Resolved]
  - Neutropenia [Recovered/Resolved]
  - Cytopenia [Unknown]

NARRATIVE: CASE EVENT DATE: 20211014
